FAERS Safety Report 8978468 (Version 1)
Quarter: 2012Q4

REPORT INFORMATION
  Report Type: 
  Country: US (occurrence: US)
  Receive Date: 20121221
  Receipt Date: 20121221
  Transmission Date: 20130627
  Serious: No
  Sender: FDA-Public Use
  Company Number: US-JNJFOC-20121204946

PATIENT
  Sex: Female
  Weight: 54.43 kg

DRUGS (3)
  1. DURAGESIC [Suspect]
     Indication: BACK PAIN
     Route: 062
     Dates: start: 201203, end: 201211
  2. DURAGESIC [Suspect]
     Indication: BACK PAIN
     Route: 062
     Dates: start: 201211
  3. DURAGESIC [Suspect]
     Indication: BACK PAIN
     Route: 062
     Dates: start: 2011, end: 201203

REACTIONS (5)
  - Therapeutic response delayed [Not Recovered/Not Resolved]
  - Product quality issue [Unknown]
  - Therapeutic response decreased [Recovered/Resolved]
  - Wrong technique in drug usage process [Recovered/Resolved]
  - Product quality issue [Unknown]
